FAERS Safety Report 4392473-8 (Version None)
Quarter: 2004Q3

REPORT INFORMATION
  Report Type: 
  Country: None (occurrence: None)
  Receive Date: 20040701
  Receipt Date: 20040618
  Transmission Date: 20050211
  Serious: Yes (Life-Threatening, Hospitalization)
  Sender: FDA-Public Use
  Company Number: 2004-BP-04796AU

PATIENT
  Age: 37 Year
  Sex: Female

DRUGS (1)
  1. MOBIC [Suspect]
     Dosage: 7.5 MG (7.5 MG)PO' 1 DOSE
     Route: 048
     Dates: start: 20040616, end: 20040616

REACTIONS (3)
  - OROPHARYNGEAL SWELLING [None]
  - SWELLING FACE [None]
  - SWOLLEN TONGUE [None]
